FAERS Safety Report 25215441 (Version 1)
Quarter: 2025Q2

REPORT INFORMATION
  Report Type: Spontaneous
  Country: US (occurrence: US)
  Receive Date: 20250418
  Receipt Date: 20250418
  Transmission Date: 20250716
  Serious: No
  Sender: Phathom Pharmaceuticals
  Company Number: US-PHATHOM PHARMACEUTICALS INC.-2024PHT01593

PATIENT
  Age: 62 Year
  Sex: Male

DRUGS (1)
  1. VOQUEZNA [Suspect]
     Active Substance: VONOPRAZAN FUMARATE
     Indication: Gastric ulcer
     Dosage: 20 MG, 1X/DAY
     Route: 048
     Dates: start: 20240603, end: 20241226

REACTIONS (4)
  - Arthralgia [Unknown]
  - Headache [Unknown]
  - Diarrhoea [Unknown]
  - Off label use [Unknown]

NARRATIVE: CASE EVENT DATE: 20240101
